FAERS Safety Report 15785742 (Version 1)
Quarter: 2018Q4

REPORT INFORMATION
  Report Type: Spontaneous
  Country: US (occurrence: US)
  Receive Date: 20181228
  Receipt Date: 20181228
  Transmission Date: 20190205
  Serious: No
  Sender: FDA-Public Use
  Company Number: None

PATIENT
  Sex: Female

DRUGS (1)
  1. HYDROCORTISONE. [Suspect]
     Active Substance: HYDROCORTISONE
     Indication: ADDISON^S DISEASE
     Route: 048

REACTIONS (10)
  - Anxiety [None]
  - Myalgia [None]
  - Arthralgia [None]
  - Incorrect dose administered [None]
  - Muscle tightness [None]
  - Product dispensing error [None]
  - Product identification number issue [None]
  - Product colour issue [None]
  - Thinking abnormal [None]
  - Muscular weakness [None]

NARRATIVE: CASE EVENT DATE: 2018
